FAERS Safety Report 9358934 (Version 1)
Quarter: 2013Q2

REPORT INFORMATION
  Report Type: Spontaneous
  Country: US (occurrence: US)
  Receive Date: 20130620
  Receipt Date: 20130620
  Transmission Date: 20140414
  Serious: No
  Sender: FDA-Public Use
  Company Number: US-009507513-1306USA009102

PATIENT
  Sex: Female
  Weight: 72.58 kg

DRUGS (5)
  1. NUVARING [Suspect]
     Indication: CONTRACEPTION
     Dosage: UNK
     Route: 067
     Dates: start: 200306, end: 20031014
  2. NUVARING [Suspect]
     Indication: OVARIAN CYST
  3. LOVENOX [Concomitant]
     Indication: ANTICOAGULANT THERAPY
     Dosage: 60 MG, BID
     Dates: start: 2012
  4. LOVENOX [Concomitant]
     Dosage: UNK
     Dates: start: 2008
  5. LOVENOX [Concomitant]
     Dosage: 90 MG, QD
     Dates: start: 201205, end: 2012

REACTIONS (2)
  - Maternal exposure before pregnancy [Unknown]
  - Abnormal loss of weight [Unknown]
